FAERS Safety Report 22126398 (Version 4)
Quarter: 2023Q2

REPORT INFORMATION
  Report Type: Spontaneous
  Country: US (occurrence: None)
  Receive Date: 20230322
  Receipt Date: 20230427
  Transmission Date: 20230721
  Serious: Yes (Hospitalization)
  Sender: FDA-Public Use
  Company Number: US-FARMAPROD-202303-0699

PATIENT
  Age: 61 Year
  Sex: Male
  Weight: 110.78 kg

DRUGS (29)
  1. OXERVATE [Suspect]
     Active Substance: CENEGERMIN-BKBJ
     Indication: Hypoaesthesia eye
     Route: 047
     Dates: start: 20230302
  2. NOVOLOG [Concomitant]
     Active Substance: INSULIN ASPART
     Dosage: VIAL
  3. MURO-128 [Concomitant]
  4. LUMIGAN [Concomitant]
     Active Substance: BIMATOPROST
     Route: 061
  5. FLAREX [Concomitant]
     Active Substance: FLUOROMETHOLONE ACETATE
  6. VITAMIN D3 [Concomitant]
     Active Substance: CHOLECALCIFEROL
  7. OXYGEN [Concomitant]
     Active Substance: OXYGEN
  8. ONDANSETRON HYDROCHLORIDE [Concomitant]
     Active Substance: ONDANSETRON HYDROCHLORIDE
  9. SINGULAIR [Concomitant]
     Active Substance: MONTELUKAST SODIUM
  10. ATORVASTATIN CALCIUM [Concomitant]
     Active Substance: ATORVASTATIN CALCIUM
  11. INCRUSE ELLIPTA [Concomitant]
     Active Substance: UMECLIDINIUM BROMIDE
     Dosage: BLISTER WITH DEVICE
  12. DULOXETINE HYDROCHLORIDE [Concomitant]
     Active Substance: DULOXETINE HYDROCHLORIDE
  13. LEVEMIR [Concomitant]
     Active Substance: INSULIN DETEMIR
  14. CARVEDILOL [Concomitant]
     Active Substance: CARVEDILOL
  15. LACTULOSE [Concomitant]
     Active Substance: LACTULOSE
     Dosage: 10 GRAM / 15 ML
  16. MIDODRINE HYDROCHLORIDE [Concomitant]
     Active Substance: MIDODRINE HYDROCHLORIDE
  17. SYMBICORT [Concomitant]
     Active Substance: BUDESONIDE\FORMOTEROL FUMARATE DIHYDRATE
     Dosage: 160-4.5 MCG HYDROFLUOROALKANE, AEROSOL WITH ADAPTER.
  18. VALTREX [Concomitant]
     Active Substance: VALACYCLOVIR HYDROCHLORIDE
  19. LIDOCAINE [Concomitant]
     Active Substance: LIDOCAINE
     Dosage: ADHESIVE PATCH.
  20. SEVELAMER CARBONATE [Concomitant]
     Active Substance: SEVELAMER CARBONATE
     Dosage: PACKET
  21. COLLAGENASE SANTYL [Concomitant]
     Active Substance: COLLAGENASE CLOSTRIDIUM HISTOLYTICUM
  22. ALBUTEROL SULFATE [Concomitant]
     Active Substance: ALBUTEROL SULFATE
     Dosage: 2.5 MG / 3 ML VIAL-NEBULIZER
  23. ASPIRIN [Concomitant]
     Active Substance: ASPIRIN
  24. RENVELA [Concomitant]
     Active Substance: SEVELAMER CARBONATE
     Dosage: PACKET
  25. TERAZOSIN HYDROCHLORIDE [Concomitant]
     Active Substance: TERAZOSIN HYDROCHLORIDE
  26. FINASTERIDE [Concomitant]
     Active Substance: FINASTERIDE
  27. LAC-HYDRIN FIVE [Concomitant]
     Dosage: LOTION
  28. OXYCODONE HYDROCHLORIDE [Concomitant]
     Active Substance: OXYCODONE HYDROCHLORIDE
  29. TOBRAMYCIN [Concomitant]
     Active Substance: TOBRAMYCIN
     Route: 061

REACTIONS (7)
  - Pneumonia [Unknown]
  - Pharyngeal haemorrhage [Unknown]
  - Chronic obstructive pulmonary disease [Unknown]
  - Arteriovenous fistula thrombosis [Unknown]
  - Eye pain [Unknown]
  - Ocular hyperaemia [Unknown]
  - Wrong technique in product usage process [Unknown]

NARRATIVE: CASE EVENT DATE: 20230301
